FAERS Safety Report 6188553-7 (Version None)
Quarter: 2009Q2

REPORT INFORMATION
  Report Type: 
  Country: None (occurrence: None)
  Receive Date: 20090513
  Receipt Date: 20090507
  Transmission Date: 20091009
  Serious: Yes (Hospitalization)
  Sender: FDA-Public Use
  Company Number: GB-ABBOTT-09P-167-0572174-00

PATIENT
  Age: 22 Year
  Sex: Male

DRUGS (5)
  1. LOPINAVIR AND RITONAVIR [Suspect]
     Indication: HIV INFECTION
     Dosage: UNKNOWN
  2. ABACAVIR [Suspect]
     Indication: HIV INFECTION
     Dosage: UNKNOWN
  3. LAMIVUDINE [Suspect]
     Indication: HIV INFECTION
     Dosage: UNKNOWN
  4. TENOFOVIR [Concomitant]
     Indication: HIV INFECTION
     Dosage: NOT REPORTED
  5. MYCOPHENOLATE MOFETIL [Concomitant]
     Indication: DRUG USE FOR UNKNOWN INDICATION

REACTIONS (2)
  - IMMUNE RECONSTITUTION SYNDROME [None]
  - STILL'S DISEASE ADULT ONSET [None]
